FAERS Safety Report 4363809-9 (Version None)
Quarter: 2004Q2

REPORT INFORMATION
  Report Type: 
  Country: None (occurrence: None)
  Receive Date: 20040521
  Receipt Date: 20040510
  Transmission Date: 20050107
  Serious: Yes (Hospitalization)
  Sender: FDA-Public Use
  Company Number: 2004212651FR

PATIENT
  Age: 82 Year
  Sex: Female

DRUGS (2)
  1. PRACTON-GE (SPIRONOLACTONE) TABLET, 50MG [Suspect]
     Indication: ESSENTIAL HYPERTENSION
     Dosage: SEE IMAGE
     Route: 048
     Dates: start: 20031210, end: 20040225
  2. AUGMENTIN '125' [Concomitant]

REACTIONS (7)
  - DEPRESSED LEVEL OF CONSCIOUSNESS [None]
  - DIZZINESS [None]
  - HYPONATRAEMIA [None]
  - MALAISE [None]
  - STUPOR [None]
  - SYNCOPE [None]
  - URINE SODIUM ABNORMAL [None]
